FAERS Safety Report 22002428 (Version 3)
Quarter: 2023Q1

REPORT INFORMATION
  Report Type: Other
  Country: US (occurrence: None)
  Receive Date: 20230217
  Receipt Date: 20230306
  Transmission Date: 20230417
  Serious: Yes (Death)
  Sender: FDA-Public Use
  Company Number: US-ROCHE-3287312

PATIENT
  Age: 77 Year
  Sex: Male

DRUGS (7)
  1. ZELBORAF [Suspect]
     Active Substance: VEMURAFENIB
     Indication: Kaposi^s sarcoma
     Dosage: TAKE 3 TABLETS OF 720 MG BY MOUTH EVERY 12 HOURS FOR 28 DAYS
     Route: 048
     Dates: start: 20230110
  2. ZELBORAF [Suspect]
     Active Substance: VEMURAFENIB
     Indication: Malignant melanoma
  3. COTELLIC [Suspect]
     Active Substance: COBIMETINIB
     Indication: Kaposi^s sarcoma
     Dosage: TAKE 3 TABLET(S) BY MOUTH EVERY 12 HOURS FOR 28 DAYS
     Route: 048
     Dates: start: 20230110
  4. COTELLIC [Suspect]
     Active Substance: COBIMETINIB
     Indication: Malignant melanoma
     Dosage: TAKE 2 TABLET(S) BY MOUTH DAILY ON DAYS 1-21 OF EACH 28 DAY CYCLE.
     Route: 048
  5. LEVOTHYROXINE [Concomitant]
     Active Substance: LEVOTHYROXINE
  6. RITALIN [Concomitant]
     Active Substance: METHYLPHENIDATE HYDROCHLORIDE
     Route: 048
  7. FLOMAX CAPSULE [Concomitant]

REACTIONS (1)
  - Death [Fatal]

NARRATIVE: CASE EVENT DATE: 20230210
